FAERS Safety Report 9013971 (Version 1)
Quarter: 2013Q1

REPORT INFORMATION
  Report Type: Spontaneous
  Country: US (occurrence: None)
  Receive Date: 20130109
  Receipt Date: 20130109
  Transmission Date: 20140127
  Serious: Yes (Death, Life-Threatening, Hospitalization)
  Sender: FDA-Public Use
  Company Number: None

PATIENT
  Age: 42 Year
  Sex: Female
  Weight: 128.9 kg

DRUGS (8)
  1. PEGASYS [Suspect]
     Indication: HEPATITIS C
     Dates: start: 20121109, end: 20130101
  2. INCIVEK [Suspect]
     Indication: HEPATITIS C
     Dosage: 2 TABLETS, TID, PO
     Route: 048
     Dates: start: 20121109, end: 20130101
  3. RIBAVIRIN [Concomitant]
  4. AMITRIPTYLINE [Concomitant]
  5. RANITIDINE [Concomitant]
  6. SPIRONOLACTONE [Concomitant]
  7. CITALOPRAM [Concomitant]
  8. OXYCODONE [Concomitant]

REACTIONS (8)
  - Rectal haemorrhage [None]
  - Abdominal distension [None]
  - Ascites [None]
  - Pulmonary oedema [None]
  - Transfusion related complication [None]
  - Respiratory failure [None]
  - Disseminated intravascular coagulation [None]
  - Renal failure [None]
